FAERS Safety Report 7474975-0 (Version None)
Quarter: 2011Q2

REPORT INFORMATION
  Report Type: 
  Country: None (occurrence: None)
  Receive Date: 20110505
  Receipt Date: 20110420
  Transmission Date: 20111010
  Serious: Yes (Hospitalization, Other)
  Sender: FDA-Public Use
  Company Number: 08-AUR-03452

PATIENT
  Age: 60 Year
  Sex: Female

DRUGS (7)
  1. ACETBUTOLOL [Concomitant]
  2. CEPHALEXIN [Suspect]
  3. METRONIDAZOLE [Suspect]
  4. WARFARIN SODIUM [Suspect]
     Indication: PULMONARY EMBOLISM
  5. NIFEDIPINE [Concomitant]
  6. TRIMETHOPRIM [Suspect]
     Indication: URINARY TRACT INFECTION
  7. INDAPAMIDE [Concomitant]

REACTIONS (8)
  - INTERNATIONAL NORMALISED RATIO INCREASED [None]
  - DEEP VEIN THROMBOSIS [None]
  - DRUG INTERACTION [None]
  - URETERIC OBSTRUCTION [None]
  - RETROPERITONEAL HAEMATOMA [None]
  - URINARY TRACT INFECTION [None]
  - HAEMOGLOBIN DECREASED [None]
  - HYPOVOLAEMIC SHOCK [None]
